FAERS Safety Report 7083278-8 (Version None)
Quarter: 2010Q4

REPORT INFORMATION
  Report Type: 
  Country: None (occurrence: None)
  Receive Date: 20101104
  Receipt Date: 20101021
  Transmission Date: 20110411
  Serious: Yes (Other)
  Sender: FDA-Public Use
  Company Number: PHHY2010US71500

PATIENT
  Sex: Female

DRUGS (1)
  1. GLEEVEC [Suspect]
     Indication: LEUKAEMIA
     Dosage: 400 MG, QD
     Route: 048
     Dates: start: 20080429

REACTIONS (5)
  - BARRETT'S OESOPHAGUS [None]
  - DIVERTICULITIS [None]
  - GASTRITIS [None]
  - POLYP [None]
  - VITAMIN B12 DECREASED [None]
